FAERS Safety Report 8220048-9 (Version None)
Quarter: 2012Q1

REPORT INFORMATION
  Report Type: 
  Country: None (occurrence: None)
  Receive Date: 20120320
  Receipt Date: 20110801
  Transmission Date: 20120608
  Serious: Yes (Other)
  Sender: FDA-Public Use
  Company Number: US-ROCHE-1049121

PATIENT
  Sex: Female

DRUGS (3)
  1. SYMBICORT [Concomitant]
  2. ADVAIR DISKUS 100/50 [Concomitant]
  3. OMALIZUMAB [Suspect]
     Indication: PRODUCT USED FOR UNKNOWN INDICATION
     Dates: start: 20110801

REACTIONS (1)
  - DYSPNOEA [None]
